FAERS Safety Report 5295659-3 (Version None)
Quarter: 2007Q2

REPORT INFORMATION
  Report Type: 
  Country: None (occurrence: None)
  Receive Date: 20070410
  Receipt Date: 20070410
  Transmission Date: 20071010
  Serious: Yes (Life-Threatening, Hospitalization)
  Sender: FDA-Public Use
  Company Number: None

PATIENT
  Sex: Male
  Weight: 81.5 kg

DRUGS (4)
  1. ENOXAPARIN SODIUM [Suspect]
     Indication: DEEP VEIN THROMBOSIS
     Dosage: 80 MG Q12H (SC)
     Route: 058
     Dates: start: 20061130, end: 20061206
  2. OXYCONTIN [Concomitant]
  3. TOLTERODINE [Concomitant]
  4. TRAZODONE HCL [Concomitant]

REACTIONS (3)
  - HAEMATOCRIT DECREASED [None]
  - MUSCLE HAEMORRHAGE [None]
  - SURGICAL PROCEDURE REPEATED [None]
